FAERS Safety Report 9804635 (Version 1)
Quarter: 2014Q1

REPORT INFORMATION
  Report Type: Spontaneous
  Country: US (occurrence: US)
  Receive Date: 20140108
  Receipt Date: 20140108
  Transmission Date: 20141002
  Serious: Yes (Other)
  Sender: FDA-Public Use
  Company Number: US-PFIZER INC-2014003671

PATIENT
  Age: 71 Year
  Sex: Female
  Weight: 72.56 kg

DRUGS (18)
  1. CHANTIX [Suspect]
     Indication: SMOKING CESSATION THERAPY
     Dosage: 0.5 MG, 1X/DAY
     Route: 048
     Dates: start: 20121113, end: 2012
  2. CHANTIX [Suspect]
     Dosage: UNK
     Route: 048
     Dates: start: 2012, end: 201212
  3. ALLOPURINOL [Concomitant]
     Dosage: 100 MG, 2X/DAY
  4. ASPIRIN [Concomitant]
     Dosage: 325 MG, 1X/DAY
  5. CLOPIDOGREL [Concomitant]
     Indication: ANTICOAGULANT THERAPY
     Dosage: 75 MG, UNK
  6. CYCLOBENZAPRINE [Concomitant]
     Dosage: 10 MG, 2X/DAY
  7. DICLOFENAC [Concomitant]
     Dosage: 50 MG, 3X/DAY
  8. FLUOXETINE [Concomitant]
     Dosage: 20 MG, 1X/DAY
  9. GABAPENTIN [Concomitant]
     Dosage: 400 MG, UNK
  10. HYDROCODONE W/ACETAMINOPHEN [Concomitant]
     Dosage: 7.5/325 MG, AS NEEDED
  11. LISINOPRIL [Concomitant]
     Dosage: 5 MG, 1X/DAY
  12. LOVASTATIN [Concomitant]
     Dosage: 40 MG, 1X/DAY
  13. METFORMIN [Concomitant]
     Dosage: 1000 MG, 2X/DAY
  14. METOPROLOL [Concomitant]
     Dosage: 50 MG, 1X/DAY
  15. MISOPROSTOL [Concomitant]
     Dosage: 200 MG, 2X/DAY
  16. TRAMADOL [Concomitant]
     Dosage: 50 MG, AS NEEDED
  17. HYDROCHLOROTHIAZIDE WITH TRIAMTERENE [Concomitant]
     Dosage: 37.5/20 MG, 1X/DAY
  18. OMEPRAZOLE [Concomitant]
     Dosage: 20 MG, AS NEEDED

REACTIONS (6)
  - Intracranial aneurysm [Unknown]
  - Arterial occlusive disease [Unknown]
  - Arthropathy [Unknown]
  - Gait disturbance [Unknown]
  - Pain [Unknown]
  - Drug ineffective [Unknown]
